FAERS Safety Report 4816669-3 (Version None)
Quarter: 2005Q4

REPORT INFORMATION
  Report Type: 
  Country: None (occurrence: None)
  Receive Date: 20051028
  Receipt Date: 20051016
  Transmission Date: 20060501
  Serious: Yes (Hospitalization, Other)
  Sender: FDA-Public Use
  Company Number: 2005137968

PATIENT
  Age: 68 Year
  Sex: Male
  Weight: 149.2334 kg

DRUGS (5)
  1. LIPITOR [Suspect]
     Indication: BLOOD CHOLESTEROL
     Dosage: 10 MG (10 MG, 1 IN 1 D), ORAL
     Route: 048
     Dates: start: 20050901, end: 20050101
  2. OTHER DERMATOLOGICAL PREPARATIONS (OTHER DERMATOLOGICAL PREPARATIONS) [Suspect]
     Indication: RASH
     Dosage: TOPICAL
     Route: 061
     Dates: start: 20050101
  3. OTHER DERMATOLOGICAL PREPARATIONS (OTHER DERMATOLOGICAL PREPARATIONS) [Suspect]
     Indication: URTICARIA
     Dosage: TOPICAL
     Route: 061
     Dates: start: 20050101
  4. MORPHINE [Suspect]
     Indication: PAIN
     Dates: start: 20051001
  5. ATENOLOL [Concomitant]

REACTIONS (12)
  - ARTHROPOD BITE [None]
  - CAUSTIC INJURY [None]
  - HYPERSENSITIVITY [None]
  - INFECTION [None]
  - OEDEMA PERIPHERAL [None]
  - PAIN IN EXTREMITY [None]
  - PURULENCE [None]
  - PYREXIA [None]
  - SKIN ODOUR ABNORMAL [None]
  - TREMOR [None]
  - VASCULITIS [None]
  - WOUND SECRETION [None]
